FAERS Safety Report 17542711 (Version 1)
Quarter: 2020Q1

REPORT INFORMATION
  Report Type: Spontaneous
  Country: GB (occurrence: GB)
  Receive Date: 20200315
  Receipt Date: 20200315
  Transmission Date: 20200409
  Serious: Yes (Hospitalization, Other)
  Sender: FDA-Public Use
  Company Number: NVSC2020GB067240

PATIENT
  Age: 9 Year
  Sex: Female

DRUGS (2)
  1. BECLOMETASONE [Concomitant]
     Active Substance: BECLOMETHASONE DIPROPIONATE
     Indication: PRODUCT USED FOR UNKNOWN INDICATION
     Dosage: 50 MG
     Route: 065
  2. AMOXICILLIN. [Suspect]
     Active Substance: AMOXICILLIN
     Indication: PRODUCT USED FOR UNKNOWN INDICATION
     Dosage: 15 ML, Q12H
     Route: 048
     Dates: start: 20191126

REACTIONS (10)
  - Weight decreased [Unknown]
  - Visual impairment [Unknown]
  - Oedema [Unknown]
  - Skin swelling [Unknown]
  - Vascular rupture [Unknown]
  - Abdominal pain upper [Unknown]
  - Yellow skin [Unknown]
  - Tenderness [Unknown]
  - Headache [Unknown]
  - Haematoma [Recovering/Resolving]
